FAERS Safety Report 5854657-9 (Version None)
Quarter: 2008Q3

REPORT INFORMATION
  Report Type: 
  Country: None (occurrence: None)
  Receive Date: 20080822
  Receipt Date: 20080811
  Transmission Date: 20090109
  Serious: Yes (Other)
  Sender: FDA-Public Use
  Company Number: US-PFIZER INC-2008067074

PATIENT
  Sex: Female

DRUGS (4)
  1. MARAVIROC [Suspect]
     Indication: HIV INFECTION
  2. ETRAVIRINE [Suspect]
     Indication: HIV INFECTION
     Dosage: DAILY DOSE:100MG
     Route: 048
     Dates: start: 20080307, end: 20080410
  3. TRUVADA [Suspect]
     Indication: HIV INFECTION
  4. RALTEGRAVIR [Suspect]
     Indication: HIV INFECTION

REACTIONS (1)
  - STEVENS-JOHNSON SYNDROME [None]
